FAERS Safety Report 13103468 (Version 2)
Quarter: 2017Q1

REPORT INFORMATION
  Report Type: Report from Study
  Country: NL (occurrence: NL)
  Receive Date: 20170111
  Receipt Date: 20170208
  Transmission Date: 20170428
  Serious: Yes (Hospitalization, Other)
  Sender: FDA-Public Use
  Company Number: NL-AMGEN-NLDSL2017002715

PATIENT
  Age: 83 Year
  Sex: Male

DRUGS (9)
  1. OMEPRAZOL [Concomitant]
     Active Substance: OMEPRAZOLE
     Dosage: 20 MG, QD
  2. SPIRIVA [Concomitant]
     Active Substance: TIOTROPIUM BROMIDE MONOHYDRATE
     Dosage: UNK UNK, QD
  3. XGEVA [Suspect]
     Active Substance: DENOSUMAB
     Indication: PROPHYLAXIS
     Dosage: 120 MG IN 1.70 ML, Q4WK
     Route: 058
  4. XGEVA [Suspect]
     Active Substance: DENOSUMAB
     Dosage: UNK
     Route: 058
  5. LEUPRORELINE [Concomitant]
     Active Substance: LEUPROLIDE
     Dosage: 30 MG, Q6MO
  6. SIMVASTATINE [Concomitant]
     Active Substance: SIMVASTATIN
     Dosage: 20 MG, QD
  7. CITRIC ACID [Concomitant]
     Active Substance: CITRIC ACID MONOHYDRATE
  8. FRAXODI [Concomitant]
     Active Substance: NADROPARIN CALCIUM
     Dosage: 11.400 IE, QD
  9. AMOXICILLIN W/CLAVULANIC ACID [Concomitant]
     Active Substance: AMOXICILLIN\CLAVULANIC ACID
     Dosage: 875/125 UNK, BID

REACTIONS (3)
  - Prostatic specific antigen increased [Not Recovered/Not Resolved]
  - Pneumonia [Recovering/Resolving]
  - Dysuria [Recovered/Resolved]

NARRATIVE: CASE EVENT DATE: 20161212
